FAERS Safety Report 25422177 (Version 1)
Quarter: 2025Q2

REPORT INFORMATION
  Report Type: Spontaneous
  Country: AU (occurrence: AU)
  Receive Date: 20250611
  Receipt Date: 20250611
  Transmission Date: 20250716
  Serious: Yes (Death, Hospitalization, Other)
  Sender: SINOTHERAPEUTICS INC.
  Company Number: AU-SNT-000422

PATIENT
  Age: 51 Year
  Sex: Female

DRUGS (4)
  1. MESALAMINE [Suspect]
     Active Substance: MESALAMINE
     Indication: Diarrhoea
     Route: 065
  2. BUDESONIDE [Suspect]
     Active Substance: BUDESONIDE
     Indication: Autoimmune enteropathy
     Route: 065
  3. ESCITALOPRAM [Concomitant]
     Active Substance: ESCITALOPRAM OXALATE
     Indication: Depression
     Route: 065
  4. MESALAMINE [Suspect]
     Active Substance: MESALAMINE
     Indication: Diarrhoea
     Route: 048

REACTIONS (4)
  - Off label use [Unknown]
  - Autoimmune enteropathy [Not Recovered/Not Resolved]
  - Disease progression [Not Recovered/Not Resolved]
  - Multiple organ dysfunction syndrome [Fatal]
